FAERS Safety Report 10997963 (Version 1)
Quarter: 2015Q2

REPORT INFORMATION
  Report Type: Spontaneous
  Country: US (occurrence: None)
  Receive Date: 20150407
  Receipt Date: 20150407
  Transmission Date: 20150821
  Serious: Yes (Hospitalization, Disabling, Other)
  Sender: FDA-Public Use
  Company Number: None

PATIENT
  Age: 78 Year
  Sex: Female

DRUGS (16)
  1. XANAX [Suspect]
     Active Substance: ALPRAZOLAM
  2. METOPROLOL SUCC [Suspect]
     Active Substance: METOPROLOL SUCCINATE
  3. BENADRYL [Suspect]
     Active Substance: DIPHENHYDRAMINE HYDROCHLORIDE
  4. LEVOTHYROXINE [Suspect]
     Active Substance: LEVOTHYROXINE
  5. CITALOPRAM [Suspect]
     Active Substance: CITALOPRAM HYDROBROMIDE
     Indication: DEPRESSION
     Route: 048
     Dates: start: 20121015, end: 20140510
  6. GABAPENTIN. [Suspect]
     Active Substance: GABAPENTIN
  7. ASPIRIN. [Suspect]
     Active Substance: ASPIRIN
  8. ESTROPIPATE. [Suspect]
     Active Substance: ESTROPIPATE
  9. ONE-A-DAY NOS [Suspect]
     Active Substance: MINERALS\VITAMINS
  10. MELOXICAM. [Suspect]
     Active Substance: MELOXICAM
  11. EXELON PATCH [Suspect]
     Active Substance: RIVASTIGMINE
  12. CELEXA [Concomitant]
     Active Substance: CITALOPRAM HYDROBROMIDE
  13. ATORVASTATIN [Suspect]
     Active Substance: ATORVASTATIN
  14. XANAX [Suspect]
     Active Substance: ALPRAZOLAM
  15. MACRODANTIN [Suspect]
     Active Substance: NITROFURANTOIN
  16. HYDROCODONE [Suspect]
     Active Substance: HYDROCODONE

REACTIONS (3)
  - Cervical vertebral fracture [None]
  - Product substitution issue [None]
  - Dementia Alzheimer^s type [None]

NARRATIVE: CASE EVENT DATE: 201210
